FAERS Safety Report 8181204-1 (Version None)
Quarter: 2012Q1

REPORT INFORMATION
  Report Type: 
  Country: None (occurrence: None)
  Receive Date: 20120302
  Receipt Date: 20120223
  Transmission Date: 20120608
  Serious: Yes (Death, Hospitalization)
  Sender: FDA-Public Use
  Company Number: FR-GLAXOSMITHKLINE-B0783818A

PATIENT
  Sex: Female

DRUGS (23)
  1. BUDESONIDE [Suspect]
     Dosage: 1MG THREE TIMES PER DAY
     Route: 055
     Dates: start: 20111203, end: 20111210
  2. ROVAMYCINE [Suspect]
     Dosage: 1TAB THREE TIMES PER DAY
     Route: 048
     Dates: start: 20111206, end: 20111210
  3. ASPIRIN [Concomitant]
     Dates: end: 20111108
  4. ARIXTRA [Suspect]
     Indication: PRODUCT USED FOR UNKNOWN INDICATION
     Dosage: 2.5MG PER DAY
     Route: 058
     Dates: start: 20111202, end: 20111210
  5. AMOXICILLIN AND CLAVULANATE POTASSIUM [Suspect]
     Indication: PRODUCT USED FOR UNKNOWN INDICATION
     Dosage: 3G PER DAY
     Route: 048
     Dates: start: 20111205, end: 20111210
  6. POLYETHYLENE GLYCOL [Concomitant]
  7. MIANSERINE [Concomitant]
  8. LOVENOX [Concomitant]
     Dates: start: 20111105, end: 20111114
  9. LEXOMIL [Concomitant]
  10. SINGULAIR [Concomitant]
  11. IPRATROPIUM BROMIDE [Concomitant]
     Dates: start: 20111104, end: 20111112
  12. ACETAMINOPHEN [Suspect]
     Indication: PAIN
     Dosage: 3G PER DAY
     Route: 048
     Dates: start: 20111209, end: 20111210
  13. LASIX [Concomitant]
     Dosage: 40MG SEE DOSAGE TEXT
  14. LEVOTHYROXINE SODIUM [Concomitant]
  15. PREDNISOLONE [Concomitant]
     Dates: start: 20111130, end: 20111206
  16. RESPIRATORY PHYSIOTHERAPY [Concomitant]
     Dates: start: 20111206
  17. METHYLPREDNISOLONE [Suspect]
     Dosage: 40MG PER DAY
     Route: 042
     Dates: start: 20111206, end: 20111210
  18. LANSOPRAZOLE [Concomitant]
     Dates: start: 20111108
  19. CALCIPARINE [Concomitant]
     Dates: start: 20111124, end: 20111130
  20. FLUTICASONE PROPIONATE/SALMETEROL [Concomitant]
     Dates: start: 20111202, end: 20111206
  21. ALDACTONE [Concomitant]
     Dates: end: 20111112
  22. CORDARONE [Concomitant]
  23. POTASSIUM CHLORIDE [Concomitant]

REACTIONS (2)
  - HAEMATOMA [None]
  - HYPOVOLAEMIC SHOCK [None]
